FAERS Safety Report 18341393 (Version 1)
Quarter: 2020Q4

REPORT INFORMATION
  Report Type: Spontaneous
  Country: US (occurrence: US)
  Receive Date: 20201004
  Receipt Date: 20201004
  Transmission Date: 20210113
  Serious: No
  Sender: FDA-Public Use
  Company Number: US-PERRIGO-19US012258

PATIENT
  Age: 36 Year
  Sex: Male
  Weight: 158.73 kg

DRUGS (1)
  1. NICOTINE POLACRILEX [Suspect]
     Active Substance: NICOTINE
     Indication: SMOKING CESSATION THERAPY
     Dosage: 2 MG, APPROX. 8 TIMES DAILY
     Route: 002
     Dates: start: 201909, end: 20191003

REACTIONS (1)
  - Aphthous ulcer [Recovering/Resolving]

NARRATIVE: CASE EVENT DATE: 20191001
